FAERS Safety Report 12665755 (Version 2)
Quarter: 2016Q4

REPORT INFORMATION
  Report Type: Spontaneous
  Country: FR (occurrence: FR)
  Receive Date: 20160818
  Receipt Date: 20161010
  Transmission Date: 20170207
  Serious: Yes (Life-Threatening, Disabling)
  Sender: FDA-Public Use
  Company Number: FR-JNJFOC-20160811215

PATIENT
  Age: 38 Year
  Sex: Female

DRUGS (3)
  1. REMICADE [Suspect]
     Active Substance: INFLIXIMAB
     Indication: ENTEROCOLITIS HAEMORRHAGIC
     Dosage: 1 DOSAGE FORM
     Route: 042
     Dates: start: 20100322, end: 20150107
  2. PENTASA [Suspect]
     Active Substance: MESALAMINE
     Indication: ENTEROCOLITIS HAEMORRHAGIC
     Dosage: 2 DF (1 DF BID)
     Route: 048
  3. METOJECT [Suspect]
     Active Substance: METHOTREXATE SODIUM
     Indication: ENTEROCOLITIS HAEMORRHAGIC
     Dosage: 1 DOSAGE FORM
     Route: 058
     Dates: start: 20150101, end: 201504

REACTIONS (3)
  - Product use issue [Unknown]
  - Lung adenocarcinoma [Not Recovered/Not Resolved]
  - Off label use [Unknown]

NARRATIVE: CASE EVENT DATE: 20100322
